FAERS Safety Report 15232368 (Version 16)
Quarter: 2022Q3

REPORT INFORMATION
  Report Type: Report from Study
  Country: CA (occurrence: CA)
  Receive Date: 20180802
  Receipt Date: 20220824
  Transmission Date: 20221027
  Serious: Yes (Other)
  Sender: FDA-Public Use
  Company Number: CA-TAKEDA-2018TUS005971

PATIENT
  Age: 66 Year
  Sex: Male

DRUGS (17)
  1. VEDOLIZUMAB [Suspect]
     Active Substance: VEDOLIZUMAB
     Indication: Colitis ulcerative
     Dosage: 300 MILLIGRAM
     Route: 042
     Dates: start: 20180222
  2. VEDOLIZUMAB [Suspect]
     Active Substance: VEDOLIZUMAB
     Dosage: 300 MILLIGRAM
     Route: 042
  3. VEDOLIZUMAB [Suspect]
     Active Substance: VEDOLIZUMAB
     Dosage: 300 MILLIGRAM
     Route: 042
  4. VEDOLIZUMAB [Suspect]
     Active Substance: VEDOLIZUMAB
     Dosage: 300 MILLIGRAM
     Route: 042
  5. VEDOLIZUMAB [Suspect]
     Active Substance: VEDOLIZUMAB
     Dosage: 300 MILLIGRAM
     Route: 042
  6. VEDOLIZUMAB [Suspect]
     Active Substance: VEDOLIZUMAB
     Dosage: 300 MILLIGRAM
     Route: 042
  7. VEDOLIZUMAB [Suspect]
     Active Substance: VEDOLIZUMAB
     Dosage: 300 MILLIGRAM
     Route: 042
  8. VEDOLIZUMAB [Suspect]
     Active Substance: VEDOLIZUMAB
     Dosage: 300 MILLIGRAM
     Route: 042
  9. VEDOLIZUMAB [Suspect]
     Active Substance: VEDOLIZUMAB
     Dosage: 300 MILLIGRAM
     Route: 042
  10. VEDOLIZUMAB [Suspect]
     Active Substance: VEDOLIZUMAB
     Dosage: 300 MILLIGRAM
     Route: 042
  11. VEDOLIZUMAB [Suspect]
     Active Substance: VEDOLIZUMAB
     Dosage: 300 MILLIGRAM
     Route: 042
  12. VEDOLIZUMAB [Suspect]
     Active Substance: VEDOLIZUMAB
     Dosage: 300 MILLIGRAM
     Route: 042
     Dates: end: 20220707
  13. SEREVENT DISKUS [Suspect]
     Active Substance: SALMETEROL XINAFOATE
     Indication: Product used for unknown indication
     Dosage: UNK
     Route: 065
  14. NITROGLYCERIN [Suspect]
     Active Substance: NITROGLYCERIN
     Indication: Product used for unknown indication
     Dosage: UNK
     Route: 065
  15. MESALAMINE [Concomitant]
     Active Substance: MESALAMINE
     Dosage: 1.2 MILLIGRAM, QD
  16. VITAMIN D NOS [Concomitant]
     Active Substance: VITAMIN D NOS
     Dosage: UNK UNK, BID
  17. PANAX QUINQUEFOLIUS WHOLE [Concomitant]
     Active Substance: PANAX QUINQUEFOLIUS WHOLE
     Dosage: UNK

REACTIONS (39)
  - Coronary artery disease [Not Recovered/Not Resolved]
  - Syncope [Recovered/Resolved]
  - Rash pruritic [Unknown]
  - Infusion site discomfort [Unknown]
  - Pain [Unknown]
  - Dyspnoea [Unknown]
  - Dysuria [Unknown]
  - Myalgia [Unknown]
  - Anosmia [Unknown]
  - Ageusia [Unknown]
  - Abdominal pain [Unknown]
  - Umbilical hernia [Unknown]
  - Asthenia [Unknown]
  - Malaise [Unknown]
  - Vitreous floaters [Recovered/Resolved]
  - Aortic aneurysm [Unknown]
  - Visual impairment [Unknown]
  - Personality change [Unknown]
  - Dizziness [Unknown]
  - Upper-airway cough syndrome [Unknown]
  - Infusion site extravasation [Unknown]
  - Anxiety [Unknown]
  - Chest pain [Unknown]
  - Blood pressure increased [Unknown]
  - Rhinorrhoea [Unknown]
  - Hyperhidrosis [Unknown]
  - Vomiting [Unknown]
  - Abdominal distension [Unknown]
  - Chills [Unknown]
  - Hypertension [Unknown]
  - Electrocardiogram abnormal [Not Recovered/Not Resolved]
  - Nasal disorder [Unknown]
  - Oropharyngeal pain [Unknown]
  - Nausea [Unknown]
  - Cough [Unknown]
  - Arthralgia [Unknown]
  - Fatigue [Unknown]
  - Pruritus [Unknown]
  - Product dose omission issue [Unknown]

NARRATIVE: CASE EVENT DATE: 20180101
